FAERS Safety Report 4383206-X (Version None)
Quarter: 2004Q2

REPORT INFORMATION
  Report Type: 
  Country: None (occurrence: None)
  Receive Date: 20040622
  Receipt Date: 20040622
  Transmission Date: 20050107
  Serious: Yes (Other)
  Sender: FDA-Public Use
  Company Number: None

PATIENT
  Sex: Female
  Weight: 54.4316 kg

DRUGS (1)
  1. LEVAQUIN [Suspect]
     Indication: INFECTION
     Dosage: 500 MG 1 PER DAY ORAL
     Route: 048

REACTIONS (3)
  - EAR PAIN [None]
  - HALLUCINATION [None]
  - VISION BLURRED [None]
